FAERS Safety Report 8736971 (Version 2)
Quarter: 2013Q2

REPORT INFORMATION
  Report Type: Spontaneous
  Country: US (occurrence: US)
  Receive Date: 20120822
  Receipt Date: 20130620
  Transmission Date: 20140414
  Serious: No
  Sender: FDA-Public Use
  Company Number: US-ASTRAZENECA-2011SE59797

PATIENT
  Age: 79 Year
  Sex: Male

DRUGS (2)
  1. SYMBICORT PMDI [Suspect]
     Dosage: UNKNOWN
     Route: 055
  2. CRESTOR [Suspect]
     Route: 048

REACTIONS (2)
  - Nasopharyngitis [Unknown]
  - Abdominal discomfort [Unknown]
